FAERS Safety Report 8595434-8 (Version None)
Quarter: 2012Q3

REPORT INFORMATION
  Report Type: 
  Country: None (occurrence: None)
  Receive Date: 20120815
  Receipt Date: 20120712
  Transmission Date: 20120928
  Serious: No
  Sender: FDA-Public Use
  Company Number: US-BRISTOL-MYERS SQUIBB COMPANY-16763286

PATIENT
  Age: 53 Year
  Sex: Female
  Weight: 106 kg

DRUGS (1)
  1. ONGLYZA [Suspect]
     Indication: HYPERGLYCAEMIA
     Dosage: ALSO TAKEN 10MG (5 MG IN THE MORNING AND 5 MG IN THE EVENING)
     Dates: start: 20111221, end: 20120710

REACTIONS (3)
  - OVERDOSE [None]
  - NASAL DRYNESS [None]
  - DRUG INEFFECTIVE [None]
